FAERS Safety Report 5709596-0 (Version None)
Quarter: 2008Q2

REPORT INFORMATION
  Report Type: 
  Country: None (occurrence: None)
  Receive Date: 20080418
  Receipt Date: 20080408
  Transmission Date: 20081010
  Serious: Yes (Congenital Anomaly)
  Sender: FDA-Public Use
  Company Number: A0699214A

PATIENT
  Sex: Male

DRUGS (4)
  1. PAXIL [Suspect]
     Indication: DEPRESSION
     Dates: start: 20000101, end: 20040101
  2. PAXIL CR [Suspect]
     Indication: DEPRESSION
     Dosage: 25MG IN THE MORNING
     Dates: start: 20021009
  3. VITAMIN [Concomitant]
  4. WELLBUTRIN [Concomitant]
     Dates: start: 20000101, end: 20040101

REACTIONS (6)
  - ATRIAL SEPTAL DEFECT [None]
  - DRUG EXPOSURE DURING PREGNANCY [None]
  - MITRAL VALVE DISEASE [None]
  - MULTIPLE CONGENITAL ABNORMALITIES [None]
  - PERICARDITIS [None]
  - PREMATURE BABY [None]
